FAERS Safety Report 25135943 (Version 2)
Quarter: 2025Q2

REPORT INFORMATION
  Report Type: Report from Study
  Country: US (occurrence: US)
  Receive Date: 20250328
  Receipt Date: 20250402
  Transmission Date: 20250717
  Serious: Yes (Other)
  Sender: GLAXOSMITHKLINE
  Company Number: US-GLAXOSMITHKLINE INC-US2025GSK033326

PATIENT

DRUGS (1)
  1. BELIMUMAB [Suspect]
     Active Substance: BELIMUMAB
     Indication: Systemic lupus erythematosus
     Dosage: 200 MG, Q2W
     Route: 058
     Dates: start: 20181003

REACTIONS (1)
  - Marginal zone lymphoma [Not Recovered/Not Resolved]

NARRATIVE: CASE EVENT DATE: 20190605
